FAERS Safety Report 18916002 (Version 1)
Quarter: 2021Q1

REPORT INFORMATION
  Report Type: Spontaneous
  Country: US (occurrence: US)
  Receive Date: 20210219
  Receipt Date: 20210219
  Transmission Date: 20210420
  Serious: No
  Sender: FDA-Public Use
  Company Number: US-JNJFOC-20210222471

PATIENT
  Age: 55 Year
  Sex: Female
  Weight: 90.8 kg

DRUGS (1)
  1. WOMENS ROGAINE UNSCENTED [Suspect]
     Active Substance: MINOXIDIL
     Indication: ALOPECIA
     Dosage: DOSE: A QUARTER?LAST USED ON 08?JAN?2021
     Route: 061
     Dates: start: 20200818

REACTIONS (3)
  - Inappropriate schedule of product administration [Unknown]
  - Hair growth abnormal [Not Recovered/Not Resolved]
  - Incorrect dose administered [Unknown]

NARRATIVE: CASE EVENT DATE: 20200818
